FAERS Safety Report 15634398 (Version 1)
Quarter: 2018Q4

REPORT INFORMATION
  Report Type: Spontaneous
  Country: US (occurrence: US)
  Receive Date: 20181119
  Receipt Date: 20181119
  Transmission Date: 20190205
  Serious: Yes (Other)
  Sender: FDA-Public Use
  Company Number: None

PATIENT
  Age: 51 Year
  Sex: Female
  Weight: 59.4 kg

DRUGS (22)
  1. POLYETHYLENE GLYCOL [Concomitant]
     Active Substance: POLYETHYLENE GLYCOLS
     Dates: start: 20181022, end: 20181102
  2. VALACYCLOVIR [Concomitant]
     Active Substance: VALACYCLOVIR HYDROCHLORIDE
     Dates: start: 20180829
  3. TBO-FILGRASTIM [Concomitant]
     Active Substance: TBO-FILGRASTIM
     Dates: start: 20181027, end: 20181030
  4. LORATADINE. [Concomitant]
     Active Substance: LORATADINE
     Dates: start: 20180731, end: 20181102
  5. BUPROPION. [Concomitant]
     Active Substance: BUPROPION
     Dates: start: 20180724
  6. AMOXICILLIN-CLAVULANATE [Concomitant]
     Active Substance: AMOXICILLIN\CLAVULANIC ACID
     Dates: start: 20181022, end: 20181026
  7. POTASSIUM CHLORIDE. [Concomitant]
     Active Substance: POTASSIUM CHLORIDE
     Dates: start: 20181023, end: 20181030
  8. LORAZEPAM. [Concomitant]
     Active Substance: LORAZEPAM
     Dates: start: 20180817
  9. MEPERIDINE [Concomitant]
     Active Substance: MEPERIDINE
     Dates: start: 20181027, end: 20181027
  10. SUPERSATURATED CALCIUM PHOSPHATE RINSE [Concomitant]
     Dates: start: 20181022, end: 20181102
  11. FLUCONAZOLE. [Concomitant]
     Active Substance: FLUCONAZOLE
     Dates: start: 20180724, end: 20181102
  12. CHLORHEXIDINE [Concomitant]
     Active Substance: CHLORHEXIDINE
     Dates: start: 20181022, end: 20181102
  13. OXYCODONE IMMEDIATE RELEASE [Concomitant]
     Active Substance: OXYCODONE
     Dates: start: 20181024, end: 20181030
  14. SENNOSIDES. [Concomitant]
     Active Substance: SENNOSIDES
     Dates: start: 20181023, end: 20181026
  15. FLUTICASONE. [Concomitant]
     Active Substance: FLUTICASONE
     Dates: start: 20181024, end: 20181102
  16. PROCHLORPERAZINE. [Concomitant]
     Active Substance: PROCHLORPERAZINE
     Dates: start: 20180724
  17. ONDANSETRON [Concomitant]
     Active Substance: ONDANSETRON
     Dates: start: 20180817
  18. AXICABTAGENE CILOLEUCEL [Suspect]
     Active Substance: AXICABTAGENE CILOLEUCEL
     Dosage: ?          OTHER FREQUENCY:ONCE;?
     Route: 041
     Dates: start: 20181022, end: 20181022
  19. ZOLPIDEM [Concomitant]
     Active Substance: ZOLPIDEM\ZOLPIDEM TARTRATE
     Dates: start: 20180724
  20. DOCUSATE SODIUM. [Concomitant]
     Active Substance: DOCUSATE SODIUM
     Dates: start: 20181023, end: 20181101
  21. ESCITALOPRAM [Concomitant]
     Active Substance: ESCITALOPRAM OXALATE
     Dates: start: 20180724
  22. ENOXAPARIN [Concomitant]
     Active Substance: ENOXAPARIN
     Dates: start: 20181022, end: 20181102

REACTIONS (2)
  - Neurotoxicity [None]
  - Cytokine release syndrome [None]

NARRATIVE: CASE EVENT DATE: 20181024
